FAERS Safety Report 8625409-1 (Version None)
Quarter: 2012Q3

REPORT INFORMATION
  Report Type: 
  Country: None (occurrence: None)
  Receive Date: 20120827
  Receipt Date: 20120820
  Transmission Date: 20120928
  Serious: Yes (Other)
  Sender: FDA-Public Use
  Company Number: CHPA2012RU018737

PATIENT
  Sex: Female

DRUGS (2)
  1. TILORONE [Concomitant]
     Dosage: UNK, UNK
  2. PHENYLEPHRINE HYDROCHLORIDE [Suspect]
     Indication: INFLUENZA
     Dosage: 2-3 SACHETS PER DAY
     Route: 048
     Dates: start: 20120711, end: 20120712

REACTIONS (6)
  - HYPERSENSITIVITY [None]
  - PRURITUS [None]
  - BURNING SENSATION [None]
  - RASH [None]
  - BLISTER [None]
  - ERYTHEMA [None]
